FAERS Safety Report 25778258 (Version 1)
Quarter: 2025Q3

REPORT INFORMATION
  Report Type: Spontaneous
  Country: EU (occurrence: EU)
  Receive Date: 20250909
  Receipt Date: 20250909
  Transmission Date: 20251021
  Serious: Yes (Other)
  Sender: AUROBINDO
  Company Number: EU-Komodo Health-a23aa000008nmJpAAI

PATIENT
  Age: 77 Year
  Sex: Female

DRUGS (3)
  1. PRAMIPEXOLE [Suspect]
     Active Substance: PRAMIPEXOLE
     Indication: Restless legs syndrome
     Route: 065
  2. OFEV [Suspect]
     Active Substance: NINTEDANIB
     Indication: Interstitial lung disease
     Dosage: 100 MILLIGRAM, TWO TIMES A DAY
     Route: 065
     Dates: start: 20250512, end: 20250716
  3. LEVODOPA [Suspect]
     Active Substance: LEVODOPA
     Indication: Restless legs syndrome
     Route: 065

REACTIONS (14)
  - Colitis ulcerative [Unknown]
  - Hepatotoxicity [Unknown]
  - Cough [Unknown]
  - Dyspnoea exertional [Unknown]
  - Mouth swelling [Unknown]
  - Seasonal allergy [Unknown]
  - Emphysema [Unknown]
  - Weight decreased [Unknown]
  - Asthma [Unknown]
  - Diarrhoea [Recovered/Resolved]
  - Decreased appetite [Recovered/Resolved]
  - Middle insomnia [Recovered/Resolved]
  - Frequent bowel movements [Recovered/Resolved]
  - Drug ineffective [Unknown]

NARRATIVE: CASE EVENT DATE: 20250526
